FAERS Safety Report 9334358 (Version 1)
Quarter: 2013Q2

REPORT INFORMATION
  Report Type: Spontaneous
  Country: US (occurrence: US)
  Receive Date: 20130606
  Receipt Date: 20130606
  Transmission Date: 20140414
  Serious: No
  Sender: FDA-Public Use
  Company Number: US-AMGEN-USASP2012076763

PATIENT
  Age: 76 Year
  Sex: Female

DRUGS (10)
  1. PROLIA [Suspect]
     Indication: OSTEOPOROSIS POSTMENOPAUSAL
     Dosage: 60 MG, Q6MO
  2. CALCIUM [Concomitant]
  3. VITAMIN D                          /00107901/ [Concomitant]
  4. CYMBALTA [Concomitant]
  5. NEURONTIN [Concomitant]
  6. VICODIN [Concomitant]
  7. LISINOPRIL [Concomitant]
  8. MULTIVITAMIN                       /00097801/ [Concomitant]
  9. SIMVASTATIN [Concomitant]
  10. ULTRAM [Concomitant]

REACTIONS (2)
  - Influenza like illness [Unknown]
  - Mobility decreased [Unknown]
